FAERS Safety Report 9222413 (Version 1)
Quarter: 2013Q2

REPORT INFORMATION
  Report Type: Spontaneous
  Country: US (occurrence: US)
  Receive Date: 20130410
  Receipt Date: 20130410
  Transmission Date: 20140414
  Serious: Yes (Other)
  Sender: FDA-Public Use
  Company Number: US-ELI_LILLY_AND_COMPANY-US201304000653

PATIENT
  Sex: Male

DRUGS (2)
  1. CYMBALTA [Suspect]
     Indication: DEPRESSION
     Dosage: 30 MG, UNK
     Dates: start: 201211
  2. LITHIUM [Concomitant]
     Dosage: UNK, UNKNOWN

REACTIONS (2)
  - Pancreatitis [Unknown]
  - Diabetes mellitus inadequate control [Unknown]
